FAERS Safety Report 19925644 (Version 1)
Quarter: 2021Q4

REPORT INFORMATION
  Report Type: Report from Study
  Country: None (occurrence: RO)
  Receive Date: 20211007
  Receipt Date: 20211007
  Transmission Date: 20220303
  Serious: Yes (Hospitalization, Other)
  Sender: FDA-Public Use
  Company Number: RO-ABBVIE-21K-135-4108305-00

PATIENT
  Age: 62 Year
  Sex: Female

DRUGS (2)
  1. DASABUVIR [Suspect]
     Active Substance: DASABUVIR
     Indication: Chronic hepatitis C
     Route: 048
     Dates: start: 20210424, end: 20210716
  2. OMBITASVIR\PARITAPREVIR\RITONAVIR [Suspect]
     Active Substance: OMBITASVIR\PARITAPREVIR\RITONAVIR
     Indication: Chronic hepatitis C
     Route: 048
     Dates: start: 20210424, end: 20210716

REACTIONS (1)
  - Neoplasm malignant [Not Recovered/Not Resolved]

NARRATIVE: CASE EVENT DATE: 20211001
